FAERS Safety Report 9742948 (Version 1)
Quarter: 2013Q4

REPORT INFORMATION
  Report Type: Spontaneous
  Country: US (occurrence: US)
  Receive Date: 20131210
  Receipt Date: 20131210
  Transmission Date: 20140711
  Serious: No
  Sender: FDA-Public Use
  Company Number: US-TEVA-432985USA

PATIENT
  Sex: Female

DRUGS (2)
  1. BUDESONIDE [Suspect]
     Indication: NASAL DISORDER
     Dosage: 0.5 MG/2 ML INHALATION
  2. BUDESONIDE [Suspect]
     Indication: SINUS DISORDER

REACTIONS (2)
  - Diarrhoea [Unknown]
  - Neuropathy peripheral [Unknown]
